FAERS Safety Report 14671626 (Version 1)
Quarter: 2018Q1

REPORT INFORMATION
  Report Type: Spontaneous
  Country: FR (occurrence: FR)
  Receive Date: 20180323
  Receipt Date: 20180323
  Transmission Date: 20180509
  Serious: Yes (Hospitalization, Other)
  Sender: FDA-Public Use
  Company Number: FR-009507513-1803FRA006230

PATIENT
  Age: 71 Year
  Sex: Female

DRUGS (2)
  1. LIPTRUZET [Suspect]
     Active Substance: ATORVASTATIN CALCIUM\EZETIMIBE
     Indication: HYPERCHOLESTEROLAEMIA
     Dosage: 10/10 MG
     Route: 048
     Dates: start: 201704, end: 2017
  2. SEROPLEX [Concomitant]
     Active Substance: ESCITALOPRAM OXALATE
     Dosage: 5MG, 3 TABLETS 4 TIMES PER WEEK

REACTIONS (7)
  - Feeding disorder [Unknown]
  - Diaphragmalgia [Unknown]
  - Spinal pain [Unknown]
  - Duodenal stenosis [Unknown]
  - Calculus urinary [Unknown]
  - Back pain [Unknown]
  - Pancreatitis chronic [Unknown]

NARRATIVE: CASE EVENT DATE: 2017
